FAERS Safety Report 19757956 (Version 2)
Quarter: 2021Q3

REPORT INFORMATION
  Report Type: Spontaneous
  Country: US (occurrence: US)
  Receive Date: 20210828
  Receipt Date: 20210908
  Transmission Date: 20211014
  Serious: No
  Sender: FDA-Public Use
  Company Number: NVSC2021US193013

PATIENT
  Age: 33 Year
  Sex: Male

DRUGS (2)
  1. AMITRIPTYLINE HCL TABLETS USP [Suspect]
     Active Substance: AMITRIPTYLINE HYDROCHLORIDE
     Indication: MAST CELL ACTIVATION SYNDROME
     Dosage: 30 MG, QD (10 MG 3 TIMES NIGHTLY)
     Route: 048
  2. VITAMIN D [Concomitant]
     Active Substance: VITAMIN D NOS
     Indication: PRODUCT USED FOR UNKNOWN INDICATION
     Dosage: UNK
     Route: 065

REACTIONS (8)
  - Lethargy [Unknown]
  - Vomiting [Unknown]
  - Decreased appetite [Unknown]
  - Chills [Unknown]
  - Nausea [Unknown]
  - Influenza like illness [Unknown]
  - Feeling abnormal [Unknown]
  - Myalgia [Unknown]

NARRATIVE: CASE EVENT DATE: 20210821
